FAERS Safety Report 15857763 (Version 4)
Quarter: 2019Q3

REPORT INFORMATION
  Report Type: Spontaneous
  Country: US (occurrence: US)
  Receive Date: 20190123
  Receipt Date: 20190717
  Transmission Date: 20191004
  Serious: Yes (Other)
  Sender: FDA-Public Use
  Company Number: US-ASTRAZENECA-2018SF34056

PATIENT
  Age: 59 Year
  Sex: Female

DRUGS (25)
  1. TRAMADOL. [Concomitant]
     Active Substance: TRAMADOL
  2. HECTOROL [Concomitant]
     Active Substance: DOXERCALCIFEROL
  3. RANITIDINE. [Concomitant]
     Active Substance: RANITIDINE
  4. NEXIUM [Suspect]
     Active Substance: ESOMEPRAZOLE MAGNESIUM
     Indication: GASTROOESOPHAGEAL REFLUX DISEASE
     Route: 048
     Dates: start: 2007
  5. NEXIUM [Suspect]
     Active Substance: ESOMEPRAZOLE MAGNESIUM
     Indication: GASTROOESOPHAGEAL REFLUX DISEASE
     Dosage: GENERIC
     Route: 065
  6. TYLENOL [Concomitant]
     Active Substance: ACETAMINOPHEN
  7. FUROSEMIDE. [Concomitant]
     Active Substance: FUROSEMIDE
  8. COREG [Concomitant]
     Active Substance: CARVEDILOL
  9. GABAPENTIN. [Concomitant]
     Active Substance: GABAPENTIN
  10. SANCTURA [Concomitant]
     Active Substance: TROSPIUM CHLORIDE
  11. HYDRALAZINE [Concomitant]
     Active Substance: HYDRALAZINE HYDROCHLORIDE
  12. AMLODIPINE [Concomitant]
     Active Substance: AMLODIPINE BESYLATE
  13. NEXIUM [Suspect]
     Active Substance: ESOMEPRAZOLE MAGNESIUM
     Indication: GASTROOESOPHAGEAL REFLUX DISEASE
     Route: 048
     Dates: start: 20140427
  14. PLAVIX [Concomitant]
     Active Substance: CLOPIDOGREL BISULFATE
  15. PRAVASTATIN SODIUM. [Concomitant]
     Active Substance: PRAVASTATIN SODIUM
  16. JANUVIA [Concomitant]
     Active Substance: SITAGLIPTIN PHOSPHATE
  17. DILTIAZEM. [Concomitant]
     Active Substance: DILTIAZEM
  18. ALLOPURINOL. [Concomitant]
     Active Substance: ALLOPURINOL
  19. PANTOPRAZOLE [Concomitant]
     Active Substance: PANTOPRAZOLE
  20. SERTRALINE [Concomitant]
     Active Substance: SERTRALINE HYDROCHLORIDE
  21. NEXIUM [Suspect]
     Active Substance: ESOMEPRAZOLE MAGNESIUM
     Indication: GASTROOESOPHAGEAL REFLUX DISEASE
     Route: 048
     Dates: start: 2008, end: 2018
  22. NEXIUM [Suspect]
     Active Substance: ESOMEPRAZOLE MAGNESIUM
     Indication: GASTROOESOPHAGEAL REFLUX DISEASE
     Route: 048
     Dates: start: 20090519, end: 20160608
  23. ADVIL [Concomitant]
     Active Substance: IBUPROFEN
  24. EPOETIN NOS [Concomitant]
     Active Substance: ERYTHROPOIETIN
  25. HYDROCODONE-ACETAMINOPHEN [Concomitant]
     Active Substance: ACETAMINOPHEN\HYDROCODONE

REACTIONS (6)
  - Anuria [Not Recovered/Not Resolved]
  - Chronic kidney disease [Unknown]
  - Acute kidney injury [Unknown]
  - Renal failure [Not Recovered/Not Resolved]
  - End stage renal disease [Unknown]
  - Nephrogenic anaemia [Unknown]

NARRATIVE: CASE EVENT DATE: 2009
